FAERS Safety Report 9099409 (Version 1)
Quarter: 2013Q1

REPORT INFORMATION
  Report Type: Spontaneous
  Country: US (occurrence: US)
  Receive Date: 20130214
  Receipt Date: 20130214
  Transmission Date: 20140127
  Serious: Yes (Death, Hospitalization, Other)
  Sender: FDA-Public Use
  Company Number: US-BAXTER-2013BAX002526

PATIENT
  Age: 74 None
  Sex: Male

DRUGS (1)
  1. DIANEAL PD2 [Suspect]
     Indication: RENAL FAILURE CHRONIC
     Route: 033
     Dates: end: 20130114

REACTIONS (4)
  - Renal failure chronic [Fatal]
  - Pneumonia [Unknown]
  - General physical health deterioration [Unknown]
  - Malaise [Unknown]
